FAERS Safety Report 10067422 (Version 1)
Quarter: 2014Q2

REPORT INFORMATION
  Report Type: Spontaneous
  Country: JO (occurrence: None)
  Receive Date: 20140407
  Receipt Date: 20140407
  Transmission Date: 20141212
  Serious: Yes (Other)
  Sender: FDA-Public Use
  Company Number: 2014P1002756

PATIENT
  Age: 31 Year
  Sex: Female
  Weight: 83 kg

DRUGS (2)
  1. OXYTOCIN [Suspect]
     Indication: UTERINE SPASM
     Route: 042
  2. DEXTROSE 5% [Suspect]
     Route: 042

REACTIONS (9)
  - Maternal exposure during pregnancy [None]
  - Unresponsive to stimuli [None]
  - Generalised tonic-clonic seizure [None]
  - Heart rate increased [None]
  - Jaw fracture [None]
  - Obstructive airways disorder [None]
  - Gingival injury [None]
  - Water intoxication [None]
  - Hyponatraemia [None]
